FAERS Safety Report 23729561 (Version 2)
Quarter: 2024Q2

REPORT INFORMATION
  Report Type: Report from Study
  Country: US (occurrence: US)
  Receive Date: 20240410
  Receipt Date: 20240515
  Transmission Date: 20240716
  Serious: Yes (Hospitalization, Other)
  Sender: FDA-Public Use
  Company Number: US-BEIGENE-BGN-2024-005237

PATIENT

DRUGS (2)
  1. BRUKINSA [Suspect]
     Active Substance: ZANUBRUTINIB
     Indication: B-cell small lymphocytic lymphoma
     Dosage: 160 MILLIGRAM, BID
     Route: 048
     Dates: start: 20230620
  2. BRUKINSA [Suspect]
     Active Substance: ZANUBRUTINIB
     Dosage: 160 MILLIGRAM, BID
     Route: 048
     Dates: start: 20230620

REACTIONS (4)
  - Pleural effusion [Unknown]
  - Pulmonary congestion [Unknown]
  - Tooth extraction [Unknown]
  - Intentional dose omission [Unknown]
